FAERS Safety Report 25874053 (Version 1)
Quarter: 2025Q4

REPORT INFORMATION
  Report Type: Spontaneous
  Country: US (occurrence: US)
  Receive Date: 20251002
  Receipt Date: 20251002
  Transmission Date: 20260119
  Serious: No
  Sender: ABBVIE
  Company Number: US-ABBVIE-6483899

PATIENT

DRUGS (1)
  1. CREON [Suspect]
     Active Substance: PANCRELIPASE AMYLASE\PANCRELIPASE LIPASE\PANCRELIPASE PROTEASE
     Indication: Pancreatic failure
     Route: 048
     Dates: start: 202509

REACTIONS (2)
  - Hypophagia [Unknown]
  - Nasopharyngitis [Unknown]

NARRATIVE: CASE EVENT DATE: 20250901
